FAERS Safety Report 5399806-4 (Version None)
Quarter: 2007Q3

REPORT INFORMATION
  Report Type: 
  Country: None (occurrence: None)
  Receive Date: 20070730
  Receipt Date: 20070720
  Transmission Date: 20080115
  Serious: Yes (Other)
  Sender: FDA-Public Use
  Company Number: CH-ELI_LILLY_AND_COMPANY-CH200707005127

PATIENT
  Age: 35 Year
  Sex: Female

DRUGS (5)
  1. ZYPREXA [Suspect]
     Indication: PERSONALITY DISORDER
     Dosage: 10 MG, DAILY (1/D)
     Route: 048
     Dates: start: 20070307
  2. PAROXETINE HCL [Concomitant]
     Indication: PERSONALITY DISORDER
     Dosage: 20 MG, DAILY (1/D)
     Route: 048
     Dates: start: 20070320
  3. XANAX [Concomitant]
     Indication: PERSONALITY DISORDER
     Dosage: 0.125 MG, 2/D
     Route: 048
     Dates: start: 20070204
  4. METO ZEROK [Concomitant]
     Dosage: 50 MG, DAILY (1/D)
     Route: 048
     Dates: start: 20070101
  5. DUSPATALIN [Concomitant]
     Indication: ABDOMINAL PAIN
     Dosage: 135 MG, 2/D
     Route: 048
     Dates: start: 20060101

REACTIONS (2)
  - ANTIDEPRESSANT DRUG LEVEL INCREASED [None]
  - ELECTROCARDIOGRAM QT PROLONGED [None]
